FAERS Safety Report 6141173-2 (Version None)
Quarter: 2009Q2

REPORT INFORMATION
  Report Type: 
  Country: None (occurrence: None)
  Receive Date: 20090402
  Receipt Date: 20090203
  Transmission Date: 20091009
  Serious: Yes (Hospitalization)
  Sender: FDA-Public Use
  Company Number: FR-PFIZER INC-2009167358

PATIENT

DRUGS (10)
  1. MORPHINE SULFATE [Suspect]
     Indication: HEREDITARY NON-POLYPOSIS COLORECTAL CANCER SYNDROME
     Dosage: 30 MG, 2X/DAY
     Route: 048
     Dates: end: 20081231
  2. MORPHINE SULFATE [Suspect]
     Dosage: 20 MG, 2X/DAY
     Route: 048
  3. HYDROXYZINE HCL [Suspect]
     Dosage: 25 MG, 1X/DAY
     Route: 048
     Dates: end: 20081231
  4. ROHYPNOL [Suspect]
     Dosage: 0.5 MG, 1X/DAY
     Route: 048
     Dates: end: 20081231
  5. FLECAINE [Concomitant]
     Dosage: 100 MG, UNK
     Route: 048
  6. HYDROCORTISONE [Concomitant]
     Dosage: 20 MG, UNK
     Route: 048
  7. ANASTROZOLE [Concomitant]
     Dosage: 1 DF
     Route: 048
  8. DEROXAT [Concomitant]
     Dosage: 1 DF
     Route: 048
  9. FOSAVANCE [Concomitant]
     Dosage: 70 MG, WEEKLY
     Route: 048
  10. SOTALEX [Concomitant]
     Dosage: 40 MG, 2X/DAY
     Route: 048

REACTIONS (2)
  - CONFUSIONAL STATE [None]
  - FALL [None]
